FAERS Safety Report 5366810-1 (Version None)
Quarter: 2007Q2

REPORT INFORMATION
  Report Type: 
  Country: None (occurrence: None)
  Receive Date: 20070622
  Receipt Date: 20061102
  Transmission Date: 20071010
  Serious: No
  Sender: FDA-Public Use
  Company Number: A0626027A

PATIENT
  Age: 38 Year
  Sex: Female

DRUGS (2)
  1. ZYBAN [Suspect]
     Dosage: 150MG PER DAY
     Route: 048
     Dates: start: 20061003
  2. XANAX [Concomitant]

REACTIONS (3)
  - AGITATION [None]
  - INSOMNIA [None]
  - PANIC ATTACK [None]
